FAERS Safety Report 14121804 (Version 1)
Quarter: 2017Q4

REPORT INFORMATION
  Report Type: Spontaneous
  Country: US (occurrence: US)
  Receive Date: 20171024
  Receipt Date: 20171024
  Transmission Date: 20180321
  Serious: No
  Sender: FDA-Public Use
  Company Number: US-ASTRAZENECA-2017SF07606

PATIENT
  Age: 753 Month
  Sex: Female
  Weight: 56.2 kg

DRUGS (2)
  1. TUDORZA PRESSAIR [Suspect]
     Active Substance: ACLIDINIUM BROMIDE
     Indication: CHRONIC OBSTRUCTIVE PULMONARY DISEASE
     Route: 055
     Dates: start: 2015
  2. OXYGEN. [Concomitant]
     Active Substance: OXYGEN
     Dosage: 1.5 L/MIN EVERY NIGHT
     Route: 065
     Dates: start: 2014

REACTIONS (7)
  - Back disorder [Unknown]
  - Product quality issue [Unknown]
  - Back pain [Unknown]
  - Dyspnoea [Unknown]
  - Drug dose omission [Unknown]
  - Frustration tolerance decreased [Unknown]
  - Gait disturbance [Unknown]

NARRATIVE: CASE EVENT DATE: 201710
